FAERS Safety Report 18945927 (Version 1)
Quarter: 2021Q1

REPORT INFORMATION
  Report Type: Spontaneous
  Country: US (occurrence: US)
  Receive Date: 20210226
  Receipt Date: 20210226
  Transmission Date: 20210420
  Serious: No
  Sender: FDA-Public Use
  Company Number: US-TEVA-2021-US-1877466

PATIENT
  Age: 38 Year
  Sex: Male

DRUGS (4)
  1. AUSTEDO [Suspect]
     Active Substance: DEUTETRABENAZINE
     Dosage: 24 MILLIGRAM DAILY;
     Route: 065
     Dates: start: 20210125
  2. HALDOL [Concomitant]
     Active Substance: HALOPERIDOL
  3. ZYPREXA [Concomitant]
     Active Substance: OLANZAPINE
  4. AUSTEDO [Suspect]
     Active Substance: DEUTETRABENAZINE
     Route: 065
     Dates: start: 20210111

REACTIONS (1)
  - Dizziness [Unknown]
